FAERS Safety Report 5143645-6 (Version None)
Quarter: 2006Q4

REPORT INFORMATION
  Report Type: 
  Country: None (occurrence: None)
  Receive Date: 20061103
  Receipt Date: 20061026
  Transmission Date: 20070319
  Serious: Yes (Other)
  Sender: FDA-Public Use
  Company Number: US-ALLERGAN-0606780US

PATIENT
  Sex: Female
  Weight: 57.596 kg

DRUGS (2)
  1. BOTOX COSMETIC [Suspect]
     Indication: SKIN WRINKLING
     Dosage: 25 UNITS, SINGLE
     Route: 030
     Dates: start: 20060501, end: 20060501
  2. BOTOX COSMETIC [Suspect]
     Dosage: 30 UNITS, SINGLE
     Route: 030
     Dates: start: 20060627, end: 20060627

REACTIONS (4)
  - ANTINUCLEAR ANTIBODY POSITIVE [None]
  - DIZZINESS [None]
  - MUSCLE SPASMS [None]
  - MUSCULAR WEAKNESS [None]
